FAERS Safety Report 7625340-4 (Version None)
Quarter: 2011Q3

REPORT INFORMATION
  Report Type: 
  Country: None (occurrence: None)
  Receive Date: 20110721
  Receipt Date: 20110706
  Transmission Date: 20111222
  Serious: Yes (Other)
  Sender: FDA-Public Use
  Company Number: US-UCBSA-036744

PATIENT
  Age: 49 Year

DRUGS (1)
  1. KEPPRA [Suspect]
     Route: 048

REACTIONS (4)
  - RASH GENERALISED [None]
  - PAIN [None]
  - CHILLS [None]
  - LYMPHADENOPATHY [None]
